FAERS Safety Report 5409494-6 (Version None)
Quarter: 2007Q3

REPORT INFORMATION
  Report Type: 
  Country: None (occurrence: None)
  Receive Date: 20070807
  Receipt Date: 20070807
  Transmission Date: 20080115
  Serious: Yes (Other)
  Sender: FDA-Public Use
  Company Number: None

PATIENT
  Sex: Male
  Weight: 72.5755 kg

DRUGS (2)
  1. CIALIS [Suspect]
     Indication: ERECTILE DYSFUNCTION
     Dosage: 20MG, 1/2 AND 1/4 OF FULL DOSE AS NEEDED PO
     Route: 048
     Dates: start: 20070201, end: 20070315
  2. CIALIS [Suspect]
     Indication: PEYRONIE'S DISEASE
     Dosage: 20MG, 1/2 AND 1/4 OF FULL DOSE AS NEEDED PO
     Route: 048
     Dates: start: 20070201, end: 20070315

REACTIONS (1)
  - BACK PAIN [None]
